FAERS Safety Report 8285353-9 (Version None)
Quarter: 2012Q2

REPORT INFORMATION
  Report Type: 
  Country: None (occurrence: None)
  Receive Date: 20120413
  Receipt Date: 20120410
  Transmission Date: 20120825
  Serious: No
  Sender: FDA-Public Use
  Company Number: US-PFIZER INC-2012089678

PATIENT
  Sex: Female
  Weight: 70 kg

DRUGS (2)
  1. ZITHROMAX [Suspect]
     Dosage: 250 MG, 1X/DAY
     Route: 048
     Dates: start: 20120404, end: 20120407
  2. ZITHROMAX [Suspect]
     Indication: BRONCHITIS
     Dosage: 500 MG, 1X/DAY
     Route: 048
     Dates: start: 20120403, end: 20120403

REACTIONS (2)
  - THERAPEUTIC RESPONSE UNEXPECTED [None]
  - HERPES VIRUS INFECTION [None]
